FAERS Safety Report 7060133-0 (Version None)
Quarter: 2010Q4

REPORT INFORMATION
  Report Type: 
  Country: None (occurrence: None)
  Receive Date: 20101025
  Receipt Date: 20101013
  Transmission Date: 20110411
  Serious: Yes (Other)
  Sender: FDA-Public Use
  Company Number: PHHY2010KR68819

PATIENT
  Sex: Female

DRUGS (1)
  1. SANDOSTATIN LAR [Suspect]
     Indication: ACROMEGALY

REACTIONS (4)
  - HEADACHE [None]
  - NERVOUS SYSTEM DISORDER [None]
  - OROPHARYNGEAL PAIN [None]
  - THROAT IRRITATION [None]
